FAERS Safety Report 7465549-6 (Version None)
Quarter: 2011Q1

REPORT INFORMATION
  Report Type: 
  Country: None (occurrence: None)
  Receive Date: 20110302
  Receipt Date: 20100809
  Transmission Date: 20110831
  Serious: Yes (Other)
  Sender: FDA-Public Use
  Company Number: 163-21880-10080798

PATIENT
  Age: 90 Year
  Sex: Female

DRUGS (1)
  1. REVLIMID [Suspect]
     Indication: MYELODYSPLASTIC SYNDROME
     Dosage: 10 MG, DAILY X 28 DAYS, PO
     Route: 048
     Dates: start: 20100301, end: 20100712

REACTIONS (6)
  - WHITE BLOOD CELL COUNT DECREASED [None]
  - THROMBOSIS [None]
  - INJURY [None]
  - CONTUSION [None]
  - FALL [None]
  - INFECTION [None]
